FAERS Safety Report 18416654 (Version 3)
Quarter: 2020Q4

REPORT INFORMATION
  Report Type: Spontaneous
  Country: PT (occurrence: PT)
  Receive Date: 20201022
  Receipt Date: 20201111
  Transmission Date: 20210114
  Serious: Yes (Death, Hospitalization, Other)
  Sender: FDA-Public Use
  Company Number: PT-MYLANLABS-2020M1088703

PATIENT
  Age: 54 Year
  Sex: Female

DRUGS (3)
  1. BOSENTAN. [Suspect]
     Active Substance: BOSENTAN
     Indication: SKIN ULCER
  2. BOSENTAN. [Suspect]
     Active Substance: BOSENTAN
     Indication: SCLERODERMA ASSOCIATED DIGITAL ULCER
     Dosage: UNK
     Route: 048
  3. OPSUMIT [Suspect]
     Active Substance: MACITENTAN
     Indication: SCLERODERMA ASSOCIATED DIGITAL ULCER
     Dosage: UNK
     Route: 048

REACTIONS (8)
  - Dysphagia [Unknown]
  - Product use in unapproved indication [Unknown]
  - Off label use [Unknown]
  - Death [Fatal]
  - Sclerodactylia [Recovered/Resolved]
  - Drug intolerance [Unknown]
  - Arthropathy [Recovered/Resolved]
  - Oesophageal achalasia [Recovering/Resolving]

NARRATIVE: CASE EVENT DATE: 2017
